FAERS Safety Report 4649708-3 (Version None)
Quarter: 2005Q2

REPORT INFORMATION
  Report Type: 
  Country: None (occurrence: None)
  Receive Date: 20050502
  Receipt Date: 20050425
  Transmission Date: 20051028
  Serious: Yes (Other)
  Sender: FDA-Public Use
  Company Number: PHEH2005US04749

PATIENT
  Sex: 0

DRUGS (1)
  1. FEMARA [Suspect]

REACTIONS (3)
  - DEPRESSION [None]
  - HALLUCINATION [None]
  - PSYCHOTIC DISORDER [None]
